FAERS Safety Report 13883907 (Version 1)
Quarter: 2017Q3

REPORT INFORMATION
  Report Type: Spontaneous
  Country: US (occurrence: US)
  Receive Date: 20170818
  Receipt Date: 20170818
  Transmission Date: 20171127
  Serious: No
  Sender: FDA-Public Use
  Company Number: None

PATIENT
  Age: 73 Year
  Weight: 64.35 kg

DRUGS (3)
  1. ESTRADIOL. [Concomitant]
     Active Substance: ESTRADIOL
  2. SPIRONOLACTONE. [Suspect]
     Active Substance: SPIRONOLACTONE
     Indication: HORMONE LEVEL ABNORMAL
     Dosage: ?          QUANTITY:1 TABLET TWICE A DAY MOUTH
     Route: 048
     Dates: start: 20170716, end: 20170722
  3. ONE-A-DAY NOS [Concomitant]
     Active Substance: MINERALS\VITAMINS

REACTIONS (5)
  - Eating disorder [None]
  - Suspected counterfeit product [None]
  - Malaise [None]
  - Product substitution issue [None]
  - Decreased appetite [None]
